FAERS Safety Report 6757792-6 (Version None)
Quarter: 2010Q2

REPORT INFORMATION
  Report Type: 
  Country: None (occurrence: None)
  Receive Date: 20100604
  Receipt Date: 20100604
  Transmission Date: 20101027
  Serious: Yes (Other)
  Sender: FDA-Public Use
  Company Number: None

PATIENT
  Age: 66 Year
  Sex: Male
  Weight: 120.2032 kg

DRUGS (1)
  1. FLUOCINONIDE [Suspect]
     Indication: PSORIASIS
     Dosage: ^SMALL AMOUNT^ AS NEEDED  ONE APPLICATION
     Dates: start: 20100530, end: 20100530

REACTIONS (3)
  - APPLICATION SITE PAIN [None]
  - PRODUCT FORMULATION ISSUE [None]
  - RASH MACULAR [None]
